FAERS Safety Report 8922674 (Version 2)
Quarter: 2012Q4

REPORT INFORMATION
  Report Type: 
  Country: JP (occurrence: JP)
  Receive Date: 20121123
  Receipt Date: 20121211
  Transmission Date: 20130627
  Serious: Yes (Hospitalization)
  Sender: FDA-Public Use
  Company Number: PHHY2012JP105166

PATIENT
  Age: 26 Year
  Sex: Female

DRUGS (3)
  1. TEGRETOL [Suspect]
     Indication: SCHIZOAFFECTIVE DISORDER
     Dosage: 1200 mg daily
     Route: 048
     Dates: start: 200807
  2. CONTOMIN [Suspect]
     Indication: SCHIZOAFFECTIVE DISORDER
     Dosage: 350 mg, daily
     Route: 048
     Dates: start: 200809
  3. SOLANAX [Suspect]
     Indication: SCHIZOAFFECTIVE DISORDER
     Dosage: 1.2 mg, daily
     Route: 048
     Dates: start: 200809

REACTIONS (2)
  - Presyncope [Recovered/Resolved]
  - Electroencephalogram abnormal [Unknown]
